FAERS Safety Report 12310734 (Version 2)
Quarter: 2016Q2

REPORT INFORMATION
  Report Type: Spontaneous
  Country: BE (occurrence: BE)
  Receive Date: 20160427
  Receipt Date: 20160504
  Transmission Date: 20160815
  Serious: Yes (Other)
  Sender: FDA-Public Use
  Company Number: BE-ACTELION-A-CH2016-134597

PATIENT
  Age: 76 Year
  Sex: Female
  Weight: 52 kg

DRUGS (9)
  1. PANTOMED [Concomitant]
     Active Substance: DEXPANTHENOL
     Dosage: 20 MG, OD
     Route: 048
  2. SPIRONOLACTONE. [Concomitant]
     Active Substance: SPIRONOLACTONE
     Dosage: 25 MG, OD
     Route: 048
  3. REVATIO [Concomitant]
     Active Substance: SILDENAFIL CITRATE
     Indication: PULMONARY ARTERIAL HYPERTENSION
     Dosage: 60 MG, TID
     Route: 048
     Dates: start: 2015
  4. TOTALIP [Concomitant]
     Active Substance: ATORVASTATIN
     Dosage: 40 MG, OD
     Route: 048
  5. CACIT VITAMIN D3 [Concomitant]
     Active Substance: CALCIUM CARBONATE\CHOLECALCIFEROL
     Dosage: 500 MG, OD
     Route: 048
  6. L-THYROXINE [Concomitant]
     Active Substance: LEVOTHYROXINE
     Dosage: 75 MCG, OD
     Route: 048
  7. ASAFLOW [Concomitant]
     Active Substance: ASPIRIN
     Dosage: 80 MG, OD
     Route: 048
  8. TRACLEER [Suspect]
     Active Substance: BOSENTAN
     Indication: PULMONARY ARTERIAL HYPERTENSION
     Dosage: 125 MG, BID
     Route: 048
     Dates: start: 2013
  9. BURINEX [Concomitant]
     Active Substance: BUMETANIDE
     Indication: PULMONARY ARTERIAL HYPERTENSION
     Dosage: 2.5 MG, OD
     Route: 048

REACTIONS (4)
  - Mitral valve incompetence [Unknown]
  - Haemodynamic instability [Unknown]
  - Autoimmune thyroiditis [Unknown]
  - Ankle fracture [Unknown]
